FAERS Safety Report 4368391-8 (Version None)
Quarter: 2004Q2

REPORT INFORMATION
  Report Type: 
  Country: None (occurrence: None)
  Receive Date: 20040602
  Receipt Date: 20040601
  Transmission Date: 20050107
  Serious: Yes (Other)
  Sender: FDA-Public Use
  Company Number: US-GLAXOSMITHKLINE-A0512883A

PATIENT
  Age: 61 Year
  Sex: Female

DRUGS (10)
  1. WELLBUTRIN [Suspect]
     Indication: ILL-DEFINED DISORDER
     Dosage: 150MG PER DAY
     Route: 048
     Dates: start: 20040518
  2. TOPROL-XL [Concomitant]
  3. PLAVIX [Concomitant]
  4. AMILORIDE [Concomitant]
  5. NORVASC [Concomitant]
  6. AVAPRO [Concomitant]
  7. KEPPRA [Concomitant]
  8. LEXAPRO [Concomitant]
  9. VICODIN [Concomitant]
  10. AMBIEN [Concomitant]

REACTIONS (4)
  - COUGH [None]
  - HALLUCINATION [None]
  - INSOMNIA [None]
  - SLEEP TALKING [None]
